FAERS Safety Report 7357570-3 (Version None)
Quarter: 2011Q1

REPORT INFORMATION
  Report Type: 
  Country: None (occurrence: None)
  Receive Date: 20110317
  Receipt Date: 20090930
  Transmission Date: 20110831
  Serious: Yes (Death, Other)
  Sender: FDA-Public Use
  Company Number: US-BAYER-2011-010702

PATIENT
  Sex: Female

DRUGS (8)
  1. TRASYLOL [Suspect]
     Indication: AORTIC VALVE REPLACEMENT
  2. GLUCOPHAGE [Concomitant]
  3. COUMADIN [Concomitant]
  4. TRASYLOL [Suspect]
     Indication: CORONARY ARTERY BYPASS
     Dosage: UNK
     Route: 042
     Dates: start: 20000724
  5. LOPRESSOR [Concomitant]
  6. ASPIRIN [Concomitant]
  7. HUMULIN [INSULIN HUMAN] [Concomitant]
  8. LASIX [Concomitant]

REACTIONS (14)
  - RENAL INJURY [None]
  - FEAR OF DEATH [None]
  - DEATH [None]
  - UNEVALUABLE EVENT [None]
  - DEPRESSION [None]
  - RENAL FAILURE [None]
  - FEAR [None]
  - PAIN [None]
  - MULTI-ORGAN FAILURE [None]
  - ANXIETY [None]
  - EMOTIONAL DISTRESS [None]
  - NERVOUSNESS [None]
  - ANHEDONIA [None]
  - INJURY [None]
